FAERS Safety Report 10476498 (Version 2)
Quarter: 2014Q4

REPORT INFORMATION
  Report Type: Spontaneous
  Country: US (occurrence: None)
  Receive Date: 20140923
  Receipt Date: 20141124
  Transmission Date: 20150528
  Serious: Yes (Other)
  Sender: FDA-Public Use
  Company Number: US-SEPTODONT-201402234

PATIENT
  Age: 64 Year
  Sex: Female

DRUGS (2)
  1. PRILOCAINE HCL [Suspect]
     Active Substance: PRILOCAINE
     Indication: LOCAL ANAESTHESIA
     Dosage: DENTAL
     Route: 004
  2. ARTICAINE HYDROCHLORIDE [Suspect]
     Active Substance: ARTICAINE HYDROCHLORIDE
     Indication: LOCAL ANAESTHESIA
     Dosage: DENTAL
     Route: 004

REACTIONS (3)
  - Cerebrovascular accident [None]
  - XIIth nerve injury [None]
  - Dysarthria [None]

NARRATIVE: CASE EVENT DATE: 201409
